FAERS Safety Report 13483516 (Version 2)
Quarter: 2017Q2

REPORT INFORMATION
  Report Type: Spontaneous
  Country: JP (occurrence: JP)
  Receive Date: 20170426
  Receipt Date: 20170615
  Transmission Date: 20170830
  Serious: Yes (Other)
  Sender: FDA-Public Use
  Company Number: JP-SUN PHARMACEUTICAL INDUSTRIES LTD-2017RR-136966

PATIENT
  Age: 62 Year
  Sex: Male
  Weight: 67 kg

DRUGS (12)
  1. CISPLATIN. [Suspect]
     Active Substance: CISPLATIN
     Indication: LARGE CELL LUNG CANCER STAGE IV
     Dosage: 75 MG/M2, UNK
     Route: 065
     Dates: start: 20141119
  2. PREGABALIN. [Suspect]
     Active Substance: PREGABALIN
     Indication: HICCUPS
     Dosage: 150 MG, DAILY, 2 DOSES
     Route: 065
  3. APREPITANT. [Suspect]
     Active Substance: APREPITANT
     Indication: PROPHYLAXIS OF NAUSEA AND VOMITING
     Dosage: 125 MG, DAILY, DAY 1
     Route: 065
     Dates: start: 20141119
  4. GABAPENTIN. [Suspect]
     Active Substance: GABAPENTIN
     Indication: HICCUPS
     Dosage: 600 MG, DAILY, 3 DOSES
     Route: 065
  5. BEVACIZUMAB [Suspect]
     Active Substance: BEVACIZUMAB
     Indication: LARGE CELL LUNG CANCER STAGE IV
     Dosage: 7.5 MG/KG, UNK
     Route: 065
     Dates: start: 20141119
  6. CHLORPROMAZINE. [Suspect]
     Active Substance: CHLORPROMAZINE
     Dosage: 30 MG, DAILY, 3 DOSES
     Route: 065
  7. CHLORPROMAZINE. [Suspect]
     Active Substance: CHLORPROMAZINE
     Indication: HICCUPS
     Dosage: 5 MG, UNK
     Route: 030
  8. PALONOSETRON [Suspect]
     Active Substance: PALONOSETRON
     Indication: PROPHYLAXIS OF NAUSEA AND VOMITING
     Dosage: 0.75 MG, DAILY, DAY 1
     Route: 065
     Dates: start: 20141119
  9. APREPITANT. [Suspect]
     Active Substance: APREPITANT
     Dosage: 80 MG, DAILY, DAY 2,3
     Route: 065
  10. SHAKUYAKUKANZOTO [Suspect]
     Active Substance: HERBALS
     Indication: HICCUPS
     Dosage: 7.5 MG, DAILY, 3 DOSES
     Route: 065
  11. PEMETREXED. [Suspect]
     Active Substance: PEMETREXED
     Indication: LARGE CELL LUNG CANCER STAGE IV
     Dosage: 500 MG/M2, UNK
     Route: 065
     Dates: start: 20141119
  12. DEXAMETHASONE. [Suspect]
     Active Substance: DEXAMETHASONE
     Indication: PROPHYLAXIS OF NAUSEA AND VOMITING
     Dosage: 9.9 MG, DAILY, DAY 1-4
     Route: 065
     Dates: start: 20141119

REACTIONS (4)
  - Drug ineffective [Unknown]
  - Hiccups [Recovered/Resolved]
  - Off label use [Unknown]
  - Sleep disorder [Unknown]
